FAERS Safety Report 8912951 (Version 1)
Quarter: 2012Q4

REPORT INFORMATION
  Report Type: 
  Country: CN (occurrence: CN)
  Receive Date: 20121115
  Receipt Date: 20121115
  Transmission Date: 20130627
  Serious: Yes (Other)
  Sender: FDA-Public Use
  Company Number: CN-PERRIGO-12CN009694

PATIENT
  Age: 2 Month
  Sex: Female

DRUGS (1)
  1. IMIQUIMOD [Suspect]
     Indication: HAEMANGIOMA OF SKIN
     Dosage: Unknown amount, qod at hs
     Route: 061

REACTIONS (6)
  - Application site scar [Not Recovered/Not Resolved]
  - Application site scab [Recovered/Resolved]
  - Application site erosion [Recovered/Resolved]
  - Application site ulcer [Recovered/Resolved]
  - Drug administered to patient of inappropriate age [Not Recovered/Not Resolved]
  - Drug ineffective for unapproved indication [Unknown]
